FAERS Safety Report 3203092 (Version 1)
Quarter: 2020Q3

REPORT INFORMATION
  Report Type: Spontaneous
  Country: DE (occurrence: None)
  Receive Date: 19990202
  Receipt Date: 19990202
  Transmission Date: 20201105
  Serious: Yes (Death, Life-Threatening)
  Sender: FDA-Public Use
  Company Number: LACT003990002

PATIENT
  Age: 34 Year
  Sex: Female
  Weight: 54 kg

DRUGS (67)
  1. CIPROFLOXACIN. [Suspect]
     Active Substance: CIPROFLOXACIN
     Dosage: 1 DOSAGE FORMS, IV
     Route: 042
     Dates: start: 19960817, end: 19960817
  2. OPIUM. [Suspect]
     Active Substance: OPIUM
     Indication: PAIN
     Dosage: 185 DOSAGE FORMS, PER ORAL
     Route: 048
     Dates: start: 19960807, end: 19960812
  3. VITAMINS [Suspect]
     Active Substance: VITAMINS
     Indication: PARENTERAL NUTRITION
     Dosage: 1 DOSAGE FORMS, IV
     Route: 042
     Dates: start: 19960806, end: 19960816
  4. VANCOMYCIN [Suspect]
     Active Substance: VANCOMYCIN
     Dosage: 1.5 GM IV
     Route: 042
  5. NEUPOGEN [Suspect]
     Active Substance: FILGRASTIM
     Indication: NEUTROPENIA
     Dosage: 1 DOSAGE FORMS, SUBCUTANEOUS
     Route: 058
     Dates: start: 19960816, end: 19960817
  6. DOPAMINE HYDROCHLORIDE. [Suspect]
     Active Substance: DOPAMINE HYDROCHLORIDE
     Indication: SHOCK
     Dosage: 200 MG, IV
     Route: 042
  7. ANTRA [Suspect]
     Active Substance: OMEPRAZOLE
     Indication: PROPHYLAXIS
     Dosage: 20 MG, IV
     Route: 042
  8. TENIPOSIDE. [Suspect]
     Active Substance: TENIPOSIDE
     Indication: BURKITT^S LYMPHOMA
     Dosage: 170 MG IV
     Route: 042
     Dates: start: 19960802, end: 19960803
  9. MINERALS [Suspect]
     Active Substance: MINERALS
     Indication: PARENTERAL NUTRITION
     Dosage: 1920 MILLILITERS IV
     Route: 042
     Dates: start: 19960809, end: 19960813
  10. LASIX [Suspect]
     Active Substance: FUROSEMIDE
     Indication: FLUID RETENTION
     Dosage: 20 MG , PER ORAL
     Route: 048
     Dates: start: 19960814, end: 19960814
  11. LEUCOMAX [Suspect]
     Active Substance: MOLGRAMOSTIM
     Indication: INFECTION
     Dosage: 300 MICGM, SUBCUTANEOUS
     Route: 058
     Dates: start: 19960804, end: 19960815
  12. ALBUMIN (HUMAN) [Suspect]
     Active Substance: ALBUMIN HUMAN
     Indication: BLOOD ALBUMIN
     Dosage: 400 MILLILITERS, IV
     Route: 042
     Dates: start: 19960816, end: 19960817
  13. DOLANTIN [Suspect]
     Active Substance: MEPERIDINE
     Indication: PAIN
     Dosage: 25 MG, IV
     Route: 042
     Dates: start: 19960816, end: 19960816
  14. CLINDAMYCIN PHOSPHATE. [Suspect]
     Active Substance: CLINDAMYCIN PHOSPHATE
     Dosage: 200 MG, IV
     Route: 042
     Dates: start: 19960817, end: 19960817
  15. UROMITEXAN (MESNA) [Suspect]
     Active Substance: MESNA
     Dosage: 1200 MG IV
     Route: 042
     Dates: start: 19960730, end: 19960804
  16. DEXAMETHASONE. [Suspect]
     Active Substance: DEXAMETHASONE
     Indication: BURKITT^S LYMPHOMA
     Dosage: 170 MG PER ORAL, INTRATHECAL
     Route: 048
     Dates: start: 19960730, end: 19960803
  17. NOVALGIN (METAMIZOLE SODIUM) [Suspect]
     Active Substance: METAMIZOLE SODIUM
     Indication: PAIN
     Dosage: 1 DOSAGE FORMS, IV
     Route: 042
     Dates: start: 19960819, end: 19960819
  18. METRONIDAZOLE. [Suspect]
     Active Substance: METRONIDAZOLE
     Dosage: 3 DOSAGE FORMS, IV
     Route: 042
     Dates: start: 19960816, end: 19960816
  19. CLEMASTINE FUMARATE. [Suspect]
     Active Substance: CLEMASTINE FUMARATE
     Indication: PRURITUS
     Dosage: 1 DOSAGE FORMS, IV
     Route: 042
  20. ZOFRAN [Suspect]
     Active Substance: ONDANSETRON HYDROCHLORIDE
     Indication: NAUSEA
     Dosage: 1 DOSAGE FORMS IV
     Route: 042
     Dates: start: 19960730, end: 19960804
  21. DEXAMETHASONE. [Suspect]
     Active Substance: DEXAMETHASONE
     Indication: BURKITT^S LYMPHOMA
     Dosage: 17 MG, PER ORAL
     Route: 048
     Dates: start: 19960729, end: 19960812
  22. AMINO ACIDS [Suspect]
     Active Substance: AMINO ACIDS, SOURCE UNSPECIFIED
     Indication: PARENTERAL NUTRITION
     Dosage: 1440?1920 ML/D IV
     Route: 042
     Dates: start: 19960802, end: 19960804
  23. MAGALDRATE [Suspect]
     Active Substance: MAGALDRATE
     Indication: PROPHYLAXIS
     Dosage: 3 DOSAGE FORMS, PER ORAL
     Route: 048
     Dates: start: 19960804, end: 19960804
  24. GLUCOSE [Concomitant]
     Active Substance: DEXTROSE
  25. AMOXICILLIN\CLAVULANATE POTASSIUM [Suspect]
     Active Substance: AMOXICILLIN\CLAVULANATE POTASSIUM
     Indication: METABOLIC DISORDER
     Dosage: 4 DOSAGE FORMS IV
     Route: 042
     Dates: start: 19960807, end: 19960811
  26. DIFLUCAN [Suspect]
     Active Substance: FLUCONAZOLE
     Indication: CANDIDA INFECTION
     Dosage: 400 MG, PER ORAL
     Route: 048
     Dates: start: 19960805, end: 19960816
  27. ACETAMINOPHEN. [Suspect]
     Active Substance: ACETAMINOPHEN
     Indication: PAIN
     Dosage: 1?3 X 1/D, PER ORAL
     Route: 048
     Dates: start: 19960817, end: 19960817
  28. CEFOTAXIME SODIUM [Suspect]
     Active Substance: CEFOTAXIME SODIUM
     Dosage: 6 GM, IV
     Route: 042
     Dates: start: 19960805, end: 19960809
  29. HEPARIN [Suspect]
     Active Substance: HEPARIN SODIUM
     Indication: PROPHYLAXIS
     Dosage: 7500 ? 1000 7 IU/D SUBCUTANEOUS
     Route: 058
     Dates: start: 19960807, end: 19960812
  30. METHOTREXATE. [Suspect]
     Active Substance: METHOTREXATE
     Indication: BURKITT^S LYMPHOMA
     Dosage: 15 MG, INTRATHECAL
     Route: 037
     Dates: start: 19960802, end: 19960802
  31. LEUCOVORIN (FOLINIC ACID) [Suspect]
     Active Substance: LEUCOVORIN
     Indication: FOLATE DEFICIENCY
     Dosage: 75 MG, IV
     Route: 042
     Dates: start: 19960801, end: 19960801
  32. LIPOFUNDIN [Suspect]
     Active Substance: EGG PHOSPHOLIPIDS\GLYCERIN\SOYBEAN OIL
     Indication: PARENTERAL NUTRITION
     Dosage: 250?500
  33. URBASON [Concomitant]
     Active Substance: METHYLPREDNISOLONE
  34. SODIUM BICARBONATE. [Concomitant]
     Active Substance: SODIUM BICARBONATE
  35. LACTULOSE. [Suspect]
     Active Substance: LACTULOSE
     Indication: CONSTIPATION
     Dosage: 1X/D, PER ORAL
     Route: 048
     Dates: start: 19960813, end: 19960813
  36. MORPHINE SULFATE. [Suspect]
     Active Substance: MORPHINE SULFATE
     Indication: PAIN
     Dosage: 1 MG/H, IV
     Route: 042
     Dates: start: 19960808, end: 19960816
  37. PIRITRAMIDE [Suspect]
     Active Substance: PIRITRAMIDE
     Indication: PAIN
     Dosage: 3.75 MG IV
     Route: 042
  38. TRIFLUPROMAZINE [Suspect]
     Active Substance: TRIFLUPROMAZINE
     Indication: RESTLESSNESS
     Dosage: 1 DOSAGE FORMS IV
     Route: 042
  39. CILASTATIN SODIUM [Suspect]
     Active Substance: CILASTATIN SODIUM
     Dosage: .5 GM IV
     Route: 042
     Dates: start: 19960816, end: 19960816
  40. PREDNISOLONE SODIUM SUCCINATE [Suspect]
     Active Substance: PREDNISOLONE SODIUM SUCCINATE
     Indication: PRURITUS
     Dosage: 50 MG, IV
     Route: 042
     Dates: start: 19960817, end: 19960817
  41. CYTARABINE. [Suspect]
     Active Substance: CYTARABINE
     Indication: BURKITT^S LYMPHOMA
     Dosage: 4MG, INTRATHECAL
     Route: 039
     Dates: start: 19960730, end: 19960730
  42. ALIZAPRIDE [Suspect]
     Active Substance: ALIZAPRIDE
     Indication: NAUSEA
     Dosage: 2 DOSAGE FORMS IV
     Route: 042
     Dates: start: 19960802, end: 19960802
  43. MAGALDRATE [Suspect]
     Active Substance: MAGALDRATE
     Indication: NAUSEA
     Dosage: 2 DOSAGE FORMS, PER ORAL
     Route: 048
     Dates: start: 19960804, end: 19960802
  44. DORMICUM (MIDAZOLAM HYDROCHLORIDE) [Suspect]
     Active Substance: MIDAZOLAM HYDROCHLORIDE
     Indication: SEDATION
     Dosage: 10 MG/H, IV
     Route: 042
  45. ASCORBIC ACID. [Suspect]
     Active Substance: ASCORBIC ACID
     Indication: HYPOVITAMINOSIS
     Dosage: 1 DOSAGE FORMS IV
     Route: 042
     Dates: start: 19960802, end: 19960802
  46. PANTOZOL [Suspect]
     Active Substance: PANTOPRAZOLE SODIUM
     Indication: PROPHYLAXIS
     Dosage: 1 DOSAGE FORMS, PER ORAL
     Route: 048
     Dates: start: 19960804, end: 19960806
  47. ISOPTIN [Suspect]
     Active Substance: VERAPAMIL HYDROCHLORIDE
     Indication: HYPERTENSION
     Dosage: 50 MG, IV
     Route: 042
     Dates: start: 19960817, end: 19960817
  48. AMPHOTERICIN B. [Suspect]
     Active Substance: AMPHOTERICIN B
     Indication: INFECTION
     Dosage: 1 DOSAGE FORMS, PER ORAL
     Route: 048
     Dates: start: 19960731, end: 19960805
  49. IFOSFAMIDE. [Suspect]
     Active Substance: IFOSFAMIDE
     Indication: BURKITT^S LYMPHOMA
     Dosage: 1300 MG IV
     Route: 042
     Dates: start: 19960730, end: 19960803
  50. VINDESINE [Suspect]
     Active Substance: VINDESINE
     Indication: BURKITT^S LYMPHOMA
     Dosage: 5 MG IV
     Route: 042
     Dates: start: 19960730, end: 19960730
  51. KCL [Concomitant]
     Active Substance: POTASSIUM CHLORIDE
  52. GLUCOSE, LIQUID [Concomitant]
     Active Substance: GLUCOSE, LIQUID
  53. METOCLOPRAMIDE HYDROCHLORIDE. [Suspect]
     Active Substance: METOCLOPRAMIDE HYDROCHLORIDE
     Indication: GASTROINTESTINAL DISORDER
     Dosage: 2 DOSAGE FORMS IV
     Route: 042
  54. GENTAMICIN SULFATE. [Suspect]
     Active Substance: GENTAMICIN SULFATE
     Dosage: 360 MG IV
     Route: 042
     Dates: start: 19960805, end: 19960811
  55. ACTRAPID [Suspect]
     Active Substance: INSULIN HUMAN
     Indication: EUPHORIC MOOD
     Dosage: 50 IU,
  56. AMPHOTERICIN B. [Suspect]
     Active Substance: AMPHOTERICIN B
     Indication: FUNGAL INFECTION
     Dosage: 40 MG IV
     Route: 042
  57. IMODIUM [Suspect]
     Active Substance: LOPERAMIDE HYDROCHLORIDE
     Indication: DIARRHOEA
     Dosage: 6 DOSAGE FORMS, PER ORAL
     Route: 048
     Dates: start: 19960816, end: 19960816
  58. FERROSANOL DUODENAL [Concomitant]
     Active Substance: FERROGLYCINE SULFATE
  59. STEROFUNDIN [Concomitant]
     Active Substance: CALCIUM CHLORIDE\MAGNESIUM CHLORIDE\POTASSIUM CHLORIDE\SODIUM ACETATE\SODIUM CHLORIDE
  60. NACL [Concomitant]
     Active Substance: SODIUM CHLORIDE
  61. ALLOPURINOL. [Suspect]
     Active Substance: ALLOPURINOL
     Indication: HYPERURICAEMIA
     Dosage: 300 MG, PER ORAL
     Route: 048
     Dates: start: 19960729, end: 19960812
  62. FLUCYTOSINE. [Suspect]
     Active Substance: FLUCYTOSINE
     Indication: FUNGAL INFECTION
     Dosage: 4 GM IV
     Route: 042
  63. MEROPENEM. [Suspect]
     Active Substance: MEROPENEM
     Dosage: .5 GM, IV
     Route: 042
  64. EPINEPHRINE. [Suspect]
     Active Substance: EPINEPHRINE
     Indication: SHOCK
     Dosage: 3 DOSAGE FORMS, IV
     Route: 042
  65. AMINO ACIDS [Suspect]
     Active Substance: AMINO ACIDS, SOURCE UNSPECIFIED
     Indication: PROTEIN DEFICIENCY
     Dosage: 1000 MILLILITERS, IV
     Route: 042
     Dates: start: 19960816, end: 19960816
  66. MAGNESIUM [Suspect]
     Active Substance: MAGNESIUM
     Indication: MAGNESIUM DEFICIENCY
     Dosage: 2 DOSAGE FORMS IV
     Route: 042
  67. SODIUM [Concomitant]
     Active Substance: SODIUM

REACTIONS (9)
  - Shock [None]
  - Pyrexia [None]
  - Stevens-Johnson syndrome [None]
  - Mucosal erosion [None]
  - Toxic epidermal necrolysis [None]
  - Pruritus [None]
  - Lip disorder [None]
  - Blister [None]
  - Dermatitis [None]

NARRATIVE: CASE EVENT DATE: 19960816
